FAERS Safety Report 11511988 (Version 4)
Quarter: 2015Q4

REPORT INFORMATION
  Report Type: Report from Study
  Country: US (occurrence: US)
  Receive Date: 20150916
  Receipt Date: 20151119
  Transmission Date: 20160304
  Serious: Yes (Hospitalization)
  Sender: FDA-Public Use
  Company Number: US-ROCHE-1602458

PATIENT
  Age: 82 Year
  Sex: Male
  Weight: 109.87 kg

DRUGS (2)
  1. PIRFENIDONE [Suspect]
     Active Substance: PIRFENIDONE
     Indication: IDIOPATHIC PULMONARY FIBROSIS
     Dosage: THREE CAPSULES THRICE A DAY
     Route: 048
     Dates: start: 20150505, end: 20151109
  2. ADCIRCA [Concomitant]
     Active Substance: TADALAFIL

REACTIONS (9)
  - Abdominal pain upper [Unknown]
  - Pruritus [Unknown]
  - Photosensitivity reaction [Recovering/Resolving]
  - Cholelithiasis [Recovered/Resolved]
  - White blood cell count increased [Unknown]
  - White blood cell count decreased [Unknown]
  - Blood potassium decreased [Recovered/Resolved]
  - Tremor [Recovered/Resolved]
  - Rash vesicular [Not Recovered/Not Resolved]

NARRATIVE: CASE EVENT DATE: 20150908
